FAERS Safety Report 7077172-6 (Version None)
Quarter: 2010Q4

REPORT INFORMATION
  Report Type: 
  Country: None (occurrence: None)
  Receive Date: 20101101
  Receipt Date: 20101025
  Transmission Date: 20110411
  Serious: Yes (Life-Threatening)
  Sender: FDA-Public Use
  Company Number: B0672244A

PATIENT
  Sex: Female
  Weight: 50 kg

DRUGS (8)
  1. TYKERB [Suspect]
     Indication: BREAST CANCER
     Dosage: 1250MG PER DAY
     Route: 048
     Dates: start: 20100803, end: 20100825
  2. HERCEPTIN [Suspect]
  3. XELODA [Concomitant]
     Dosage: 2400MG PER DAY
     Route: 048
     Dates: start: 20100803, end: 20100825
  4. DIGOXIN [Concomitant]
     Indication: CARDIAC FAILURE
     Route: 048
     Dates: start: 20100722, end: 20100830
  5. VASOLAN [Concomitant]
     Indication: TACHYCARDIA PAROXYSMAL
     Dosage: 120MG PER DAY
     Route: 048
     Dates: start: 20100722, end: 20100830
  6. FUROSEMIDE [Concomitant]
     Indication: CARDIAC FAILURE
     Route: 048
     Dates: start: 20100722, end: 20100830
  7. ALDACTONE [Concomitant]
     Indication: CARDIAC FAILURE
     Route: 048
     Dates: start: 20100722, end: 20100830
  8. BETAMETHASONE [Concomitant]
     Indication: MALAISE
     Route: 042
     Dates: start: 20100722, end: 20100901

REACTIONS (3)
  - DIARRHOEA [None]
  - INTERSTITIAL LUNG DISEASE [None]
  - PULMONARY OEDEMA [None]
